FAERS Safety Report 6150732-2 (Version None)
Quarter: 2009Q2

REPORT INFORMATION
  Report Type: 
  Country: None (occurrence: None)
  Receive Date: 20090408
  Receipt Date: 20090406
  Transmission Date: 20091009
  Serious: Yes (Other)
  Sender: FDA-Public Use
  Company Number: 1000005586

PATIENT
  Age: 60 Year
  Sex: Male

DRUGS (1)
  1. BYSTOLIC [Suspect]
     Indication: HYPERTENSION
     Dosage: (10 MG,1 IN 1 D)
     Dates: start: 20080101, end: 20090101

REACTIONS (6)
  - BALANCE DISORDER [None]
  - FALL [None]
  - FATIGUE [None]
  - MUSCLE ATROPHY [None]
  - POLYMYOSITIS [None]
  - RIB FRACTURE [None]
